FAERS Safety Report 19024568 (Version 1)
Quarter: 2021Q1

REPORT INFORMATION
  Report Type: Spontaneous
  Country: US (occurrence: US)
  Receive Date: 20210316
  Receipt Date: 20210316
  Transmission Date: 20210420
  Serious: Yes (Hospitalization)
  Sender: FDA-Public Use
  Company Number: None

PATIENT
  Age: 69 Year
  Sex: Male
  Weight: 122.92 kg

DRUGS (1)
  1. BACITRACIN/NEOMYCIN/POLYMYXIN (BACITRACIN/NEOMYCIN/POLYMYXIN OINT, TO [Suspect]
     Active Substance: BACITRACIN ZINC\NEOMYCIN SULFATE\POLYMYXIN B SULFATE
     Indication: LOCALISED INFECTION
     Dosage: ?          OTHER DOSE:400/3.5/5000 UNITS;?
     Route: 061
     Dates: start: 20191015, end: 20191126

REACTIONS (1)
  - Rash [None]

NARRATIVE: CASE EVENT DATE: 20191126
